FAERS Safety Report 9916852 (Version 3)
Quarter: 2014Q2

REPORT INFORMATION
  Report Type: Spontaneous
  Country: JP (occurrence: JP)
  Receive Date: 20140221
  Receipt Date: 20140616
  Transmission Date: 20141212
  Serious: Yes (Death, Hospitalization)
  Sender: FDA-Public Use
  Company Number: JP-EISAI INC-E7389-04773-SPO-JP

PATIENT
  Age: 71 Year
  Sex: Female
  Weight: 43 kg

DRUGS (1)
  1. HALAVEN [Suspect]
     Indication: BREAST CANCER RECURRENT
     Dosage: 1.4 MG/BODY
     Route: 041
     Dates: start: 20131220, end: 20140203

REACTIONS (3)
  - Pulmonary embolism [Fatal]
  - Infection [Recovering/Resolving]
  - Pyrexia [Recovered/Resolved]
